FAERS Safety Report 9894443 (Version 2)
Quarter: 2015Q1

REPORT INFORMATION
  Report Type: Report from Study
  Country: FR (occurrence: FR)
  Receive Date: 20140213
  Receipt Date: 20150128
  Transmission Date: 20150721
  Serious: Yes (Other)
  Sender: FDA-Public Use
  Company Number: FR-BRISTOL-MYERS SQUIBB COMPANY-20139788

PATIENT
  Age: 44 Year
  Sex: Male
  Weight: 76 kg

DRUGS (5)
  1. DASATINIB [Suspect]
     Active Substance: DASATINIB
     Dosage: 60 MG, QD
     Route: 048
     Dates: start: 20140104, end: 20140201
  2. DASATINIB [Suspect]
     Active Substance: DASATINIB
     Indication: CHRONIC MYELOID LEUKAEMIA
     Dosage: 100 MG, QD
     Route: 048
     Dates: start: 20111101, end: 20120707
  3. NEXIUM [Concomitant]
     Active Substance: ESOMEPRAZOLE MAGNESIUM
     Indication: GASTROOESOPHAGEAL REFLUX DISEASE
     Dosage: UNK
     Route: 048
     Dates: start: 2013
  4. DASATINIB [Suspect]
     Active Substance: DASATINIB
     Dosage: 50 MG, QD
     Route: 048
     Dates: start: 20120711, end: 20120730
  5. DASATINIB [Suspect]
     Active Substance: DASATINIB
     Dosage: 80 UNK, UNK
     Route: 048
     Dates: start: 20120801, end: 20140103

REACTIONS (1)
  - Lymphoid tissue hyperplasia [Recovered/Resolved]

NARRATIVE: CASE EVENT DATE: 201312
